FAERS Safety Report 20765803 (Version 8)
Quarter: 2024Q3

REPORT INFORMATION
  Report Type: Spontaneous
  Country: US (occurrence: US)
  Receive Date: 20220428
  Receipt Date: 20240809
  Transmission Date: 20241017
  Serious: No
  Sender: PFIZER
  Company Number: US-PFIZER INC-202200452935

PATIENT
  Age: 67 Year
  Sex: Female

DRUGS (6)
  1. IBRANCE [Suspect]
     Active Substance: PALBOCICLIB
     Dosage: 100 MG, CYCLIC (100MG TABLETS DAILY FOR 21 DAYS, 7 DAYS OFF )
     Route: 048
     Dates: start: 20211101, end: 202112
  2. IBRANCE [Suspect]
     Active Substance: PALBOCICLIB
     Dosage: 100 MG, CYCLIC (100MG TABLETS DAILY FOR 21 DAYS, 7 DAYS OFF )
     Route: 048
     Dates: start: 202201
  3. IBRANCE [Suspect]
     Active Substance: PALBOCICLIB
     Dosage: 100 MG, CYCLIC (100MG TABLETS DAILY FOR 21 DAYS, 7 DAYS OFF )
     Route: 048
     Dates: start: 20220317
  4. IBRANCE [Suspect]
     Active Substance: PALBOCICLIB
     Dosage: 100 MG, CYCLIC (100MG TABLETS DAILY FOR 21 DAYS, 7 DAYS OFF )
     Route: 048
  5. IBRANCE [Suspect]
     Active Substance: PALBOCICLIB
     Dosage: 100 MG, CYCLIC (100MG TABLETS DAILY FOR 21 DAYS, 7 DAYS OFF )
     Route: 048
     Dates: start: 20230227
  6. IBRANCE [Suspect]
     Active Substance: PALBOCICLIB
     Dosage: 75 MG
     Route: 048

REACTIONS (6)
  - Pain [Recovering/Resolving]
  - Arthralgia [Recovering/Resolving]
  - Myalgia [Recovering/Resolving]
  - White blood cell count decreased [Recovering/Resolving]
  - Alopecia [Not Recovered/Not Resolved]
  - Fatigue [Recovering/Resolving]

NARRATIVE: CASE EVENT DATE: 20211201
